FAERS Safety Report 16302465 (Version 1)
Quarter: 2019Q2

REPORT INFORMATION
  Report Type: Spontaneous
  Country: GB (occurrence: GB)
  Receive Date: 20190513
  Receipt Date: 20190513
  Transmission Date: 20190711
  Serious: Yes (Death)
  Sender: FDA-Public Use
  Company Number: GB-009507513-1905GBR002091

PATIENT
  Age: 73 Year
  Sex: Male

DRUGS (1)
  1. PEMBROLIZUMAB. [Suspect]
     Active Substance: PEMBROLIZUMAB
     Indication: LUNG ADENOCARCINOMA STAGE IV
     Dosage: 200 MG
     Route: 042
     Dates: start: 20161101, end: 20181101

REACTIONS (6)
  - Capillary leak syndrome [Fatal]
  - Hepatitis [Fatal]
  - Hypothyroidism [Fatal]
  - Fluid retention [Fatal]
  - Autoimmune disorder [Fatal]
  - Nephritis [Fatal]

NARRATIVE: CASE EVENT DATE: 20190227
